FAERS Safety Report 23177346 (Version 1)
Quarter: 2023Q4

REPORT INFORMATION
  Report Type: Spontaneous
  Country: CN (occurrence: CN)
  Receive Date: 20231113
  Receipt Date: 20231113
  Transmission Date: 20240110
  Serious: Yes (Hospitalization, Other)
  Sender: FDA-Public Use
  Company Number: None

PATIENT
  Age: 48 Year
  Sex: Female
  Weight: 76 kg

DRUGS (5)
  1. CYCLOPHOSPHAMIDE [Suspect]
     Active Substance: CYCLOPHOSPHAMIDE
     Indication: Breast cancer female
     Dosage: 1.1 G, ONE TIME IN ONE DAY, DILUTED WITH 0.9% SODIUM CHLORIDE (100 ML), FIRST CYCLE OF CHEMOTHERAPY,
     Route: 041
     Dates: start: 20231018, end: 20231018
  2. SODIUM CHLORIDE [Suspect]
     Active Substance: SODIUM CHLORIDE
     Indication: Medication dilution
     Dosage: 100 ML, ONE TIME IN ONE DAY, USED TO DILUTE CYCLOPHOSPHAMIDE (1.1 G), FIRST CYCLE OF CHEMOTHERAPY, A
     Route: 041
     Dates: start: 20231018, end: 20231018
  3. SODIUM CHLORIDE [Suspect]
     Active Substance: SODIUM CHLORIDE
     Dosage: 100 ML, ONE TIME IN ONE DAY, USED TO DILUTE EPIRUBICIN HYDROCHLORIDE (165 MG), FIRST CYCLE OF CHEMOT
     Route: 041
     Dates: start: 20231018, end: 20231018
  4. EPIRUBICIN [Suspect]
     Active Substance: EPIRUBICIN
     Indication: Breast cancer female
     Dosage: 165 MG, ONE TIME IN ONE DAY, DILUTED WITH 0.9% SODIUM CHLORIDE (100 ML), FIRST CYCLE OF CHEMOTHERAPY
     Route: 041
     Dates: start: 20231018, end: 20231018
  5. ANF-RHO [Suspect]
     Active Substance: ANF-RHO
     Dosage: 6 MG, ONCE
     Route: 058
     Dates: start: 20231020

REACTIONS (3)
  - Granulocytopenia [Recovering/Resolving]
  - Pyrexia [Recovering/Resolving]
  - Anaemia [Recovering/Resolving]

NARRATIVE: CASE EVENT DATE: 20231025
